FAERS Safety Report 16124067 (Version 1)
Quarter: 2019Q1

REPORT INFORMATION
  Report Type: Report from Study
  Country: US (occurrence: US)
  Receive Date: 20190327
  Receipt Date: 20190327
  Transmission Date: 20190418
  Serious: Yes (Other)
  Sender: FDA-Public Use
  Company Number: US-BAYER-2019-057990

PATIENT
  Age: 61 Year
  Sex: Male

DRUGS (9)
  1. ZOFRAN [Concomitant]
     Active Substance: ONDANSETRON HYDROCHLORIDE
  2. TACROLIMUS. [Concomitant]
     Active Substance: TACROLIMUS
  3. AMOXICILLIN. [Concomitant]
     Active Substance: AMOXICILLIN
  4. ATIVAN [Concomitant]
     Active Substance: LORAZEPAM
  5. AMIODARONE [Concomitant]
     Active Substance: AMIODARONE
  6. ACYCLOVIR [ACICLOVIR] [Concomitant]
     Active Substance: ACYCLOVIR
  7. BIAXIN [Concomitant]
     Active Substance: CLARITHROMYCIN
  8. NEXAVAR [Suspect]
     Active Substance: SORAFENIB
     Indication: ACUTE MYELOMONOCYTIC LEUKAEMIA
     Dosage: 200 MG, BID
     Route: 048
     Dates: start: 20181005
  9. AZITHROMYCIN ANHYDROUS. [Concomitant]
     Active Substance: AZITHROMYCIN ANHYDROUS

REACTIONS (3)
  - Neutropenia [Recovering/Resolving]
  - Off label use [None]
  - Product use in unapproved indication [None]
